FAERS Safety Report 9469436 (Version 1)
Quarter: 2013Q3

REPORT INFORMATION
  Report Type: Spontaneous
  Country: US (occurrence: US)
  Receive Date: 20130822
  Receipt Date: 20130822
  Transmission Date: 20140515
  Serious: Yes (Other)
  Sender: FDA-Public Use
  Company Number: US-AMGEN-USASP2013058430

PATIENT
  Age: 53 Year
  Sex: Female

DRUGS (1)
  1. EPOGEN [Suspect]
     Indication: RENAL FAILURE CHRONIC
     Dosage: 20000 UNIT, 3 TIMES/WK
     Route: 065
     Dates: start: 20111104

REACTIONS (8)
  - Haemoglobin decreased [Unknown]
  - Reticulocyte count abnormal [Unknown]
  - Serum ferritin abnormal [Unknown]
  - Transferrin saturation decreased [Unknown]
  - Iron binding capacity total abnormal [Unknown]
  - Iron binding capacity unsaturated decreased [Unknown]
  - Blood iron abnormal [Unknown]
  - Therapeutic response decreased [Unknown]
